FAERS Safety Report 25265762 (Version 1)
Quarter: 2025Q2

REPORT INFORMATION
  Report Type: Spontaneous
  Country: US (occurrence: US)
  Receive Date: 20250503
  Receipt Date: 20250503
  Transmission Date: 20250716
  Serious: No
  Sender: Karo Pharma
  Company Number: US-Karo Pharma-2176062

PATIENT
  Age: 32 Year
  Sex: Male

DRUGS (3)
  1. TERBINAFINE [Suspect]
     Active Substance: TERBINAFINE
     Indication: Psoriasis
  2. KETOCONAZOLE [Suspect]
     Active Substance: KETOCONAZOLE
  3. CLOBETASOL [Suspect]
     Active Substance: CLOBETASOL

REACTIONS (7)
  - Psoriasis [Unknown]
  - Pain in extremity [Unknown]
  - Onycholysis [Unknown]
  - Arthralgia [Unknown]
  - Drug ineffective [Unknown]
  - Pruritus [Unknown]
  - Product use in unapproved indication [Unknown]
